FAERS Safety Report 16242643 (Version 1)
Quarter: 2019Q2

REPORT INFORMATION
  Report Type: Other
  Country: DE (occurrence: DE)
  Receive Date: 20190426
  Receipt Date: 20190426
  Transmission Date: 20190711
  Serious: Yes (Other)
  Sender: FDA-Public Use
  Company Number: DE-DENTSPLY-2019SCDP000257

PATIENT
  Age: 87 Year
  Sex: Female
  Weight: 82 kg

DRUGS (5)
  1. METAMIZOLE SODIUM [Suspect]
     Active Substance: METAMIZOLE SODIUM
     Indication: SPINAL DISORDER
     Dosage: 120 DRP, DAILY DOSE: 120 GTT DROP(S) EVERY DAYS
     Route: 048
     Dates: start: 20190321, end: 20190323
  2. MEPIVACAINE HCL [Suspect]
     Active Substance: MEPIVACAINE\MEPIVACAINE HYDROCHLORIDE
     Indication: SPINAL DISORDER
     Dosage: 5 ML, 1%
     Route: 058
     Dates: start: 20190321, end: 20190323
  3. LOSARTAN. [Concomitant]
     Active Substance: LOSARTAN
     Indication: HYPERTENSION
     Dosage: 50 MG, UNK
     Route: 048
     Dates: start: 20180424
  4. DEXAMETHASON                       /00016001/ [Suspect]
     Active Substance: DEXAMETHASONE
     Indication: SPINAL DISORDER
     Dosage: 4 MG, DAILY DOSE: 4 MG MILLGRAM(S) EVERY TOTAL
     Route: 058
     Dates: start: 20190321, end: 20190321
  5. BISOPROLOL [Concomitant]
     Active Substance: BISOPROLOL
     Indication: HYPERTENSION
     Dosage: 2.5 MG, UNK
     Route: 048

REACTIONS (7)
  - Asthenia [None]
  - Chromaturia [None]
  - Cholestasis [None]
  - Faeces pale [None]
  - Hypotension [None]
  - Liver disorder [None]
  - Jaundice [None]

NARRATIVE: CASE EVENT DATE: 20190323
